FAERS Safety Report 7674046 (Version 3)
Quarter: 2013Q2

REPORT INFORMATION
  Report Type: Spontaneous
  Country: US (occurrence: US)
  Receive Date: 20101118
  Receipt Date: 20130503
  Transmission Date: 20140414
  Serious: Yes (Hospitalization, Other)
  Sender: FDA-Public Use
  Company Number: US-ROCHE-720285

PATIENT
  Age: 17 Year
  Sex: Male
  Weight: 74.8 kg

DRUGS (2)
  1. ACCUTANE [Suspect]
     Indication: ACNE
     Route: 065
     Dates: start: 19981027, end: 19990209
  2. ACCUTANE [Suspect]
     Route: 065
     Dates: start: 19990209, end: 199904

REACTIONS (7)
  - Crohn^s disease [Unknown]
  - Colitis ulcerative [Unknown]
  - Gastrointestinal injury [Unknown]
  - Intestinal obstruction [Unknown]
  - Gout [Unknown]
  - Blood cholesterol increased [Unknown]
  - Back pain [Unknown]
